FAERS Safety Report 5614915-X (Version None)
Quarter: 2008Q1

REPORT INFORMATION
  Report Type: 
  Country: None (occurrence: None)
  Receive Date: 20080206
  Receipt Date: 20071214
  Transmission Date: 20080703
  Serious: No
  Sender: FDA-Public Use
  Company Number: US-BAYER-200811157NA

PATIENT
  Age: 43 Year
  Sex: Female

DRUGS (1)
  1. CLIMARA [Suspect]
     Route: 062
     Dates: start: 19980101, end: 20071211

REACTIONS (4)
  - APPLICATION SITE PRURITUS [None]
  - APPLICATION SITE RASH [None]
  - BREAST ENLARGEMENT [None]
  - URTICARIA [None]
